FAERS Safety Report 9455373 (Version 1)
Quarter: 2013Q3

REPORT INFORMATION
  Report Type: Report from Study
  Country: US (occurrence: US)
  Receive Date: 20130813
  Receipt Date: 20130813
  Transmission Date: 20140515
  Serious: Yes (Hospitalization)
  Sender: FDA-Public Use
  Company Number: PHEH2013US016704

PATIENT
  Age: 29 Year
  Sex: Female

DRUGS (3)
  1. TOBI [Suspect]
     Indication: CYSTIC FIBROSIS
     Dosage: 300 MG, BID
  2. CREON [Concomitant]
     Dosage: UNK UKN, UNK
  3. NEXIUM [Concomitant]
     Dosage: UNK UKN, UNK

REACTIONS (4)
  - Gastrointestinal disorder [Recovering/Resolving]
  - Cholelithiasis [Recovering/Resolving]
  - Biliary tract infection [Recovering/Resolving]
  - Urinary tract infection [Recovering/Resolving]
